FAERS Safety Report 8148974-X (Version None)
Quarter: 2012Q1

REPORT INFORMATION
  Report Type: 
  Country: None (occurrence: None)
  Receive Date: 20120218
  Receipt Date: 20111020
  Transmission Date: 20120608
  Serious: Yes (Life-Threatening)
  Sender: FDA-Public Use
  Company Number: US-ALLERGAN-1110720US

PATIENT
  Age: 62 Year
  Sex: Male

DRUGS (3)
  1. BOTULINUM TOXIN TYPE A [Suspect]
     Indication: MUSCLE SPASTICITY
     Dosage: 400 UNITS, SINGLE
     Route: 030
     Dates: start: 20101216, end: 20101216
  2. BOTULINUM TOXIN TYPE A [Suspect]
  3. BOTULINUM TOXIN TYPE A [Suspect]
     Dosage: 500 UNITS, SINGLE
     Dates: start: 20110411, end: 20110411

REACTIONS (1)
  - CONVULSION [None]
